FAERS Safety Report 13251200 (Version 1)
Quarter: 2017Q1

REPORT INFORMATION
  Report Type: Spontaneous
  Country: JP (occurrence: JP)
  Receive Date: 20170220
  Receipt Date: 20170220
  Transmission Date: 20170428
  Serious: Yes (Hospitalization)
  Sender: FDA-Public Use
  Company Number: JP-ACCORD-048450

PATIENT
  Age: 75 Year
  Sex: Male
  Weight: 38 kg

DRUGS (3)
  1. DOCETAXEL. [Suspect]
     Active Substance: DOCETAXEL
     Indication: OESOPHAGEAL CANCER METASTATIC
     Dosage: RECEIVED FROM THE BEGINING OF JULY 3 WEEK 1 COURSE, DCF THERAPY, 8 COURSES RECEIVED
     Dates: start: 201407
  2. CISPLATIN. [Suspect]
     Active Substance: CISPLATIN
     Indication: OESOPHAGEAL CANCER METASTATIC
     Dosage: RECEIVED FROM THE BEGINING OF JULY ?DCF THERAPY, 8 COURSES RECEIVED
     Dates: start: 201407, end: 201412
  3. FLUOROURACIL. [Suspect]
     Active Substance: FLUOROURACIL
     Indication: OESOPHAGEAL CANCER METASTATIC
     Dosage: RECEIVED FROM THE BEGINING OF JULY ?DCF THERAPY, 8 COURSES RECEIVED
     Dates: start: 201407, end: 201412

REACTIONS (1)
  - Renal impairment [Unknown]
